FAERS Safety Report 6271089-2 (Version None)
Quarter: 2009Q3

REPORT INFORMATION
  Report Type: 
  Country: None (occurrence: None)
  Receive Date: 20090716
  Receipt Date: 20090714
  Transmission Date: 20100115
  Serious: Yes (Other)
  Sender: FDA-Public Use
  Company Number: US-MERCK-0906USA03433

PATIENT
  Age: 20 Year
  Sex: Female
  Weight: 85 kg

DRUGS (8)
  1. SINGULAIR [Suspect]
     Indication: ASTHMA
     Route: 048
     Dates: start: 20051001
  2. SINGULAIR [Suspect]
     Indication: HYPERSENSITIVITY
     Route: 048
     Dates: start: 20051001
  3. FEXOFENADINE HYDROCHLORIDE [Concomitant]
     Indication: ABDOMINAL PAIN
     Route: 048
  4. PROTONIX [Concomitant]
     Indication: GASTROOESOPHAGEAL REFLUX DISEASE
     Route: 048
     Dates: start: 20071010
  5. SYMBICORT [Concomitant]
     Indication: ABDOMINAL PAIN
     Dates: start: 20071010
  6. LEXAPRO [Concomitant]
     Route: 065
  7. ORTHO TRI-CYCLEN LO [Concomitant]
     Route: 065
  8. NASONEX [Concomitant]
     Indication: HYPERSENSITIVITY
     Route: 065

REACTIONS (3)
  - DEPRESSION [None]
  - SUICIDAL BEHAVIOUR [None]
  - SUICIDAL IDEATION [None]
